FAERS Safety Report 12218995 (Version 1)
Quarter: 2016Q1

REPORT INFORMATION
  Report Type: Spontaneous
  Country: US (occurrence: US)
  Receive Date: 20160329
  Receipt Date: 20160329
  Transmission Date: 20160526
  Serious: No
  Sender: FDA-Public Use
  Company Number: GXBR2015US000956

PATIENT
  Sex: Female

DRUGS (1)
  1. TERAZOSIN HCL CAPSULES [Suspect]
     Active Substance: TERAZOSIN HYDROCHLORIDE
     Indication: BLOOD PRESSURE MEASUREMENT
     Dosage: UNK DF, UNK
     Route: 065

REACTIONS (1)
  - Oedema peripheral [Unknown]
